FAERS Safety Report 4316792-6 (Version None)
Quarter: 2004Q1

REPORT INFORMATION
  Report Type: 
  Country: None (occurrence: None)
  Receive Date: 20040311
  Receipt Date: 20040227
  Transmission Date: 20041129
  Serious: Yes (Hospitalization)
  Sender: FDA-Public Use
  Company Number: MEDI-0001514

PATIENT
  Age: 59 Year
  Sex: Female
  Weight: 47.7 kg

DRUGS (2)
  1. CYTOGAM (IMMUNOGLOBULIN CYTOMEGALOVIRUS) [Suspect]
     Indication: LUNG TRANSPLANT
     Dosage: 150 MG/KG, INTRAVENOUS
     Route: 042
     Dates: start: 20040223, end: 20040223
  2. COUMADIN [Concomitant]

REACTIONS (8)
  - ANAPHYLACTIC SHOCK [None]
  - CYANOSIS [None]
  - DYSPNOEA [None]
  - HAEMOGLOBIN DECREASED [None]
  - HYPERCAPNIA [None]
  - HYPOXIA [None]
  - RESPIRATORY FAILURE [None]
  - WHITE BLOOD CELL COUNT DECREASED [None]
